FAERS Safety Report 21268956 (Version 1)
Quarter: 2022Q3

REPORT INFORMATION
  Report Type: Spontaneous
  Country: US (occurrence: US)
  Receive Date: 20220830
  Receipt Date: 20220830
  Transmission Date: 20221027
  Serious: No
  Sender: FDA-Public Use
  Company Number: US-GSKCCFUS-Case-01478363_AE-84463

PATIENT
  Sex: Female

DRUGS (1)
  1. BENLYSTA [Suspect]
     Active Substance: BELIMUMAB
     Indication: Product used for unknown indication
     Dosage: UNK UNK, WE

REACTIONS (5)
  - Hypoacusis [Not Recovered/Not Resolved]
  - Full blood count abnormal [Not Recovered/Not Resolved]
  - Fatigue [Not Recovered/Not Resolved]
  - Pain in extremity [Not Recovered/Not Resolved]
  - Limb operation [Not Recovered/Not Resolved]

NARRATIVE: CASE EVENT DATE: 20210401
